FAERS Safety Report 5378632-6 (Version None)
Quarter: 2007Q3

REPORT INFORMATION
  Report Type: 
  Country: None (occurrence: None)
  Receive Date: 20070702
  Receipt Date: 20070615
  Transmission Date: 20080115
  Serious: Yes (Other)
  Sender: FDA-Public Use
  Company Number: 2007AL002573

PATIENT
  Age: 86 Year
  Sex: Male

DRUGS (5)
  1. VERAPAMIL HYDROCHLORIDE [Suspect]
     Indication: ATRIAL FIBRILLATION
     Dosage: 120 MG;QD;PO
     Route: 048
     Dates: start: 20070504, end: 20070508
  2. ASPIRIN [Concomitant]
  3. PREDNISOLONE [Concomitant]
  4. METHOTREXATE [Concomitant]
  5. PRAVASTATIN [Concomitant]

REACTIONS (3)
  - ASTHENIA [None]
  - DRUG INTERACTION POTENTIATION [None]
  - INTERNATIONAL NORMALISED RATIO INCREASED [None]
